FAERS Safety Report 6955634-7 (Version None)
Quarter: 2010Q3

REPORT INFORMATION
  Report Type: 
  Country: None (occurrence: None)
  Receive Date: 20100830
  Receipt Date: 20100823
  Transmission Date: 20110219
  Serious: Yes (Other)
  Sender: FDA-Public Use
  Company Number: GB-PFIZER INC-2010105693

PATIENT
  Age: 57 Year
  Sex: Female

DRUGS (8)
  1. CELECOXIB [Suspect]
     Dosage: UNK
     Route: 048
  2. NAPROXEN [Suspect]
     Dosage: UNK
  3. ACETYLSALICYLIC ACID [Concomitant]
     Dosage: UNK
  4. LANSOPRAZOLE [Concomitant]
     Dosage: UNK
  5. SERTRALINE [Concomitant]
     Dosage: UNK
  6. SIMVASTATIN [Concomitant]
     Dosage: UNK
  7. THIAMINE [Concomitant]
     Dosage: UNK
  8. VITAMIN B COMPLEX CAP [Concomitant]
     Dosage: UNK

REACTIONS (2)
  - CAROTID ARTERY DISEASE [None]
  - CEREBRAL INFARCTION [None]
